FAERS Safety Report 8760684 (Version 2)
Quarter: 2012Q4

REPORT INFORMATION
  Report Type: 
  Country: US (occurrence: US)
  Receive Date: 20120830
  Receipt Date: 20121008
  Transmission Date: 20130627
  Serious: Yes (Hospitalization, Other)
  Sender: FDA-Public Use
  Company Number: US-JNJFOC-20120812977

PATIENT
  Age: 38 Year
  Sex: Male
  Weight: 98.41 kg

DRUGS (11)
  1. IBUPROFEN [Suspect]
     Indication: HEADACHE
     Route: 065
  2. IBUPROFEN [Suspect]
     Indication: HEADACHE
     Route: 065
  3. LYRICA [Suspect]
     Indication: CONVULSION
     Route: 048
     Dates: start: 201206
  4. LYRICA [Suspect]
     Indication: CONVULSION
     Route: 048
  5. LYRICA [Suspect]
     Indication: CONVULSION
     Route: 048
     Dates: end: 201206
  6. DILANTIN [Suspect]
     Indication: CONVULSION
     Route: 065
  7. AN UNKNOWN MEDICATION [Suspect]
     Indication: CONVULSION
     Route: 065
  8. HYDROCODONE [Concomitant]
     Route: 065
  9. MORPHINE [Concomitant]
     Route: 065
  10. BUTALBITAL [Concomitant]
     Route: 065
  11. LAMICTAL [Concomitant]
     Route: 065

REACTIONS (16)
  - Hepatic failure [Unknown]
  - Nervous system disorder [Unknown]
  - Depression [Not Recovered/Not Resolved]
  - Overdose [Unknown]
  - Weight increased [Unknown]
  - Fatigue [Not Recovered/Not Resolved]
  - Feeling abnormal [Unknown]
  - Malaise [Unknown]
  - Headache [Unknown]
  - Myalgia [Unknown]
  - Musculoskeletal stiffness [Unknown]
  - Somnolence [Unknown]
  - Swelling [Unknown]
  - Weight decreased [Unknown]
  - Asthenia [Unknown]
  - Pain [Unknown]
